FAERS Safety Report 7201680-8 (Version None)
Quarter: 2010Q4

REPORT INFORMATION
  Report Type: 
  Country: None (occurrence: None)
  Receive Date: 20101216
  Receipt Date: 20101130
  Transmission Date: 20110411
  Serious: Yes (Other)
  Sender: FDA-Public Use
  Company Number: 7029888

PATIENT
  Age: 58 Year
  Sex: Female

DRUGS (5)
  1. LEVOTHYROX 125 (LEVOTHYROXINE SODIUM) (125 MICROGRAM, TABLET) (LEVOTHY [Suspect]
     Indication: THYROID CANCER
     Dosage: ORAL
     Route: 048
  2. ACUILIX (ACUILIX /01307801/) (HYDROCHLOROTHIAZDE, QUINAPRIL) [Concomitant]
  3. MONOTILDIEM (DILTIAZEM) (DILTIAZEM) [Concomitant]
  4. LYSANXIA (PRAZEPAM) (10 MG) (PRAZEPAM) [Concomitant]
  5. CRESTOR [Concomitant]

REACTIONS (6)
  - BLOOD GLUCOSE DECREASED [None]
  - BLOOD THYROID STIMULATING HORMONE INCREASED [None]
  - FATIGUE [None]
  - HYPOKALAEMIA [None]
  - LOSS OF CONSCIOUSNESS [None]
  - PRODUCT SUBSTITUTION ISSUE [None]
